FAERS Safety Report 23219032 (Version 2)
Quarter: 2024Q1

REPORT INFORMATION
  Report Type: Spontaneous
  Country: US (occurrence: US)
  Receive Date: 20231122
  Receipt Date: 20240116
  Transmission Date: 20240410
  Serious: Yes (Hospitalization)
  Sender: FDA-Public Use
  Company Number: US-BAXTER-2023BAX034163

PATIENT

DRUGS (4)
  1. NOREPINEPHRINE BITARTRATE [Suspect]
     Active Substance: NOREPINEPHRINE BITARTRATE
     Dosage: 4 MG/250 ML (16 MCG/ML)
     Route: 065
  2. DEXMEDETOMIDINE HYDROCHLORIDE [Suspect]
     Active Substance: DEXMEDETOMIDINE HYDROCHLORIDE
     Route: 065
  3. VANCOMYCIN [Suspect]
     Active Substance: VANCOMYCIN
     Dosage: (MANUFACTURER: XELLIA PHARMACEUTICALS USA, LLC)
     Route: 065
  4. TYLENOL [Suspect]
     Active Substance: ACETAMINOPHEN
     Dosage: (MANUFACTURER: FRESENIUS KABI USA, LLC)
     Route: 065

REACTIONS (4)
  - Incorrect product administration duration [Unknown]
  - Product label confusion [Unknown]
  - Intercepted medication error [Unknown]
  - No adverse event [Unknown]
